FAERS Safety Report 8216298-8 (Version None)
Quarter: 2012Q1

REPORT INFORMATION
  Report Type: 
  Country: None (occurrence: None)
  Receive Date: 20120316
  Receipt Date: 20120309
  Transmission Date: 20120608
  Serious: Yes (Death, Other)
  Sender: FDA-Public Use
  Company Number: PHHY2012CN021449

PATIENT

DRUGS (2)
  1. CYCLOSPORINE [Suspect]
     Indication: APLASTIC ANAEMIA
     Dosage: 5 TO 8 MG/KG/DAY
  2. ANTI-THYMOCYTE GLOBULIN EQUINE NOS [Suspect]
     Indication: APLASTIC ANAEMIA
     Dosage: 2.5 MG/KG/DAY
     Route: 041

REACTIONS (4)
  - RESPIRATORY FAILURE [None]
  - CIRCULATORY COLLAPSE [None]
  - DRUG INEFFECTIVE [None]
  - INFECTION [None]
